FAERS Safety Report 22031558 (Version 1)
Quarter: 2023Q1

REPORT INFORMATION
  Report Type: Spontaneous
  Country: FR (occurrence: FR)
  Receive Date: 20230224
  Receipt Date: 20230224
  Transmission Date: 20230417
  Serious: Yes (Hospitalization)
  Sender: FDA-Public Use
  Company Number: FR-VALIDUS PHARMACEUTICALS LLC-FR-VDP-2023-015954

PATIENT

DRUGS (4)
  1. CLAFORAN [Suspect]
     Active Substance: CEFOTAXIME SODIUM
     Indication: Transplant rejection
     Dosage: 3 G, QD
     Route: 042
     Dates: start: 20220706, end: 20220713
  2. LEVOFLOXACIN [Suspect]
     Active Substance: LEVOFLOXACIN
     Indication: Transplant rejection
     Dosage: 1 G, QD
     Route: 042
     Dates: start: 20220706, end: 20220713
  3. ATOVAQUONE [Suspect]
     Active Substance: ATOVAQUONE
     Indication: Transplant rejection
     Dosage: 1500 MG, QD
     Route: 048
     Dates: start: 20220706, end: 20220713
  4. AMBISOME [Suspect]
     Active Substance: AMPHOTERICIN B
     Indication: Transplant rejection
     Dosage: 75 MG, QWK
     Route: 065
     Dates: start: 20220708, end: 20220713

REACTIONS (1)
  - Rash maculo-papular [Recovered/Resolved]
